FAERS Safety Report 5423382-0 (Version None)
Quarter: 2007Q3

REPORT INFORMATION
  Report Type: 
  Country: None (occurrence: None)
  Receive Date: 20070727
  Receipt Date: 20070628
  Transmission Date: 20080115
  Serious: No
  Sender: FDA-Public Use
  Company Number: 265332

PATIENT
  Age: 58 Year
  Sex: Female

DRUGS (4)
  1. LEVEMIR [Suspect]
     Indication: INSULIN-REQUIRING TYPE II DIABETES MELLITUS
     Dates: start: 20070614
  2. GLUCOVANCE (GLIBENCLAMIDE, METFORMIN HYDROCHLORIDE) TABLET [Concomitant]
  3. ACTOS [Concomitant]
  4. BYETTA (EXANATIDE, EXENATIDE) [Concomitant]

REACTIONS (1)
  - BLOOD GLUCOSE INCREASED [None]
